FAERS Safety Report 17391401 (Version 1)
Quarter: 2020Q1

REPORT INFORMATION
  Report Type: Report from Study
  Country: US (occurrence: US)
  Receive Date: 20200207
  Receipt Date: 20200207
  Transmission Date: 20200409
  Serious: Yes (Hospitalization)
  Sender: FDA-Public Use
  Company Number: US-ACTELION-A-NJ2019-193024

PATIENT
  Sex: Female

DRUGS (4)
  1. ATORVASTATIN [Concomitant]
     Active Substance: ATORVASTATIN
     Dosage: 80 MG, QD
  2. METOPROL XL [Concomitant]
     Dosage: 50 MG, QD
  3. OPSUMIT [Suspect]
     Active Substance: MACITENTAN
     Indication: PULMONARY ARTERIAL HYPERTENSION
     Dosage: 10 MG, QD
     Route: 048
     Dates: start: 20181227
  4. ELIQUIS [Concomitant]
     Active Substance: APIXABAN
     Dosage: 2.5 MG, QD

REACTIONS (5)
  - Tachycardia [Unknown]
  - Dyspnoea [Not Recovered/Not Resolved]
  - Peripheral swelling [Not Recovered/Not Resolved]
  - Hypotension [Unknown]
  - Hospitalisation [Unknown]
